FAERS Safety Report 8147706-9 (Version None)
Quarter: 2012Q1

REPORT INFORMATION
  Report Type: 
  Country: None (occurrence: None)
  Receive Date: 20120218
  Receipt Date: 20110307
  Transmission Date: 20120608
  Serious: No
  Sender: FDA-Public Use
  Company Number: US-ALLERGAN-1103167US

PATIENT
  Age: 36 Year
  Sex: Male

DRUGS (2)
  1. BOTULINUM TOXIN TYPE A [Suspect]
     Indication: TEMPOROMANDIBULAR JOINT SYNDROME
  2. BOTULINUM TOXIN TYPE A [Suspect]
     Indication: TENSION HEADACHE
     Dosage: 30 UNITS, SINGLE
     Route: 030
     Dates: start: 20110304, end: 20110304

REACTIONS (2)
  - INJECTION SITE PAIN [None]
  - HEADACHE [None]
